FAERS Safety Report 4990309-5 (Version None)
Quarter: 2006Q2

REPORT INFORMATION
  Report Type: 
  Country: None (occurrence: None)
  Receive Date: 20060427
  Receipt Date: 20060413
  Transmission Date: 20061013
  Serious: Yes (Hospitalization)
  Sender: FDA-Public Use
  Company Number: 224306

PATIENT
  Age: 70 Year
  Sex: Male

DRUGS (3)
  1. AVASTIN [Suspect]
     Indication: COLORECTAL CANCER METASTATIC
     Dosage: 7.5 MG/KG, Q3W, INTRAVENOUS
     Route: 042
     Dates: start: 20060329
  2. CAPECITABINE  (CAPECITABINE) [Suspect]
     Indication: COLORECTAL CANCER METASTATIC
     Dosage: 600 MG/M2, BID, ORAL
     Route: 048
     Dates: start: 20060329
  3. MITOMYCIN [Suspect]
     Indication: COLORECTAL CANCER METASTATIC
     Dosage: 7 MG/M2, INTRAVENOUS
     Route: 042
     Dates: start: 20060329

REACTIONS (4)
  - BLOOD BILIRUBIN INCREASED [None]
  - CREATININE RENAL CLEARANCE DECREASED [None]
  - GASTROENTERITIS [None]
  - PROTEIN URINE [None]
